FAERS Safety Report 17641259 (Version 2)
Quarter: 2020Q2

REPORT INFORMATION
  Report Type: Spontaneous
  Country: DE (occurrence: DE)
  Receive Date: 20200407
  Receipt Date: 20200623
  Transmission Date: 20200713
  Serious: Yes (Death, Life-Threatening, Other)
  Sender: FDA-Public Use
  Company Number: NVSC2020DE093926

PATIENT
  Age: 2 Year
  Sex: Male

DRUGS (6)
  1. METHOTREXATE. [Suspect]
     Active Substance: METHOTREXATE
     Indication: PROPHYLAXIS AGAINST GRAFT VERSUS HOST DISEASE
     Dosage: 10 MG/M2 (DAY +1, + 3, + 6)
     Route: 065
  2. AMPHOTERICIN B. [Suspect]
     Active Substance: AMPHOTERICIN B
     Indication: BRONCHOPULMONARY ASPERGILLOSIS
     Dosage: UNK
     Route: 042
  3. METHOTREXATE. [Suspect]
     Active Substance: METHOTREXATE
     Indication: STEM CELL TRANSPLANT
  4. CYCLOSPORINE. [Suspect]
     Active Substance: CYCLOSPORINE
     Indication: STEM CELL TRANSPLANT
  5. CASPOFUNGIN [Suspect]
     Active Substance: CASPOFUNGIN
     Indication: BRONCHOPULMONARY ASPERGILLOSIS
     Dosage: UNK
     Route: 065
  6. CYCLOSPORINE. [Suspect]
     Active Substance: CYCLOSPORINE
     Indication: PROPHYLAXIS AGAINST GRAFT VERSUS HOST DISEASE
     Dosage: TARGET LEVEL 150-200 NG/ML, DAY1 UNTIL DEATH ON DAY
     Route: 065

REACTIONS (21)
  - Systemic candida [Unknown]
  - Large intestinal ulcer [Unknown]
  - Hemiparesis [Fatal]
  - Bronchopulmonary aspergillosis [Unknown]
  - Acute kidney injury [Fatal]
  - Graft versus host disease in gastrointestinal tract [Fatal]
  - Pulmonary haemorrhage [Fatal]
  - Epstein-Barr virus infection reactivation [Unknown]
  - Hypertension [Unknown]
  - Venoocclusive disease [Unknown]
  - Product use in unapproved indication [Unknown]
  - Transfusion-related acute lung injury [Fatal]
  - Diarrhoea haemorrhagic [Fatal]
  - Multiple organ dysfunction syndrome [Fatal]
  - Graft versus host disease in skin [Unknown]
  - Intestinal haemorrhage [Fatal]
  - Cerebral aspergillosis [Fatal]
  - Gastrointestinal haemorrhage [Fatal]
  - Somnolence [Fatal]
  - Necrosis [Unknown]
  - Cytomegalovirus infection reactivation [Unknown]
